FAERS Safety Report 4818043-2 (Version None)
Quarter: 2005Q4

REPORT INFORMATION
  Report Type: 
  Country: None (occurrence: None)
  Receive Date: 20051102
  Receipt Date: 20051027
  Transmission Date: 20060501
  Serious: Yes (Other)
  Sender: FDA-Public Use
  Company Number: US-BRISTOL-MYERS SQUIBB COMPANY-13159710

PATIENT
  Age: 7 Decade
  Sex: Female

DRUGS (1)
  1. GLUCOPHAGE [Suspect]

REACTIONS (5)
  - BLOOD GLUCOSE INCREASED [None]
  - CHONDRECTOMY [None]
  - JOINT EFFUSION [None]
  - NERVE INJURY [None]
  - PALPITATIONS [None]
